FAERS Safety Report 7479002-7 (Version None)
Quarter: 2011Q2

REPORT INFORMATION
  Report Type: 
  Country: None (occurrence: None)
  Receive Date: 20110513
  Receipt Date: 20110511
  Transmission Date: 20111010
  Serious: Yes (Hospitalization)
  Sender: FDA-Public Use
  Company Number: DE-SANOFI-AVENTIS-2011SA028977

PATIENT
  Age: 61 Year
  Sex: Female
  Weight: 76 kg

DRUGS (5)
  1. DEXAMETHASONE [Concomitant]
     Route: 048
     Dates: start: 20110427
  2. KEVATRIL [Concomitant]
     Route: 042
     Dates: start: 20110427
  3. MESNA [Concomitant]
     Route: 042
     Dates: start: 20110427
  4. CYCLOPHOSPHAMIDE [Suspect]
     Indication: BREAST CANCER
     Route: 041
     Dates: start: 20110427, end: 20110427
  5. DOCETAXEL [Suspect]
     Indication: BREAST CANCER
     Route: 041
     Dates: start: 20110427, end: 20110427

REACTIONS (1)
  - WOUND NECROSIS [None]
